FAERS Safety Report 25258987 (Version 2)
Quarter: 2025Q2

REPORT INFORMATION
  Report Type: Spontaneous
  Country: US (occurrence: US)
  Receive Date: 20250501
  Receipt Date: 20250520
  Transmission Date: 20250717
  Serious: No
  Sender: ROCHE
  Company Number: US-ROCHE-10000271239

PATIENT
  Sex: Male

DRUGS (3)
  1. ACTEMRA [Suspect]
     Active Substance: TOCILIZUMAB
     Indication: Rheumatoid arthritis
     Dosage: STRENGTH: 162MG/0.9ML
     Route: 058
     Dates: start: 202504
  2. ACTEMRA [Suspect]
     Active Substance: TOCILIZUMAB
  3. TYVASO [Suspect]
     Active Substance: TREPROSTINIL
     Indication: Product used for unknown indication
     Dosage: 3 BREATHS FOUR TIMES A DAY
     Route: 065

REACTIONS (4)
  - Oropharyngeal pain [Unknown]
  - Throat irritation [Unknown]
  - Headache [Unknown]
  - Pain [Unknown]
